FAERS Safety Report 6880100-7 (Version None)
Quarter: 2010Q3

REPORT INFORMATION
  Report Type: 
  Country: None (occurrence: None)
  Receive Date: 20100728
  Receipt Date: 20090916
  Transmission Date: 20110219
  Serious: No
  Sender: FDA-Public Use
  Company Number: US-BRISTOL-MYERS SQUIBB COMPANY-14782320

PATIENT
  Age: 67 Year
  Sex: Female

DRUGS (7)
  1. DASATINIB [Suspect]
     Indication: CHRONIC MYELOID LEUKAEMIA
  2. COMBIGAN [Concomitant]
     Dosage: FORM=SOLUTION
     Route: 047
  3. CLARITIN [Concomitant]
  4. MOTRIN [Concomitant]
  5. XANAX [Concomitant]
  6. AMBIEN [Concomitant]
  7. VICODIN [Concomitant]

REACTIONS (2)
  - GINGIVAL PAIN [None]
  - TOOTHACHE [None]
